FAERS Safety Report 20708723 (Version 1)
Quarter: 2022Q2

REPORT INFORMATION
  Report Type: Spontaneous
  Country: US (occurrence: US)
  Receive Date: 20220414
  Receipt Date: 20220414
  Transmission Date: 20220720
  Serious: No
  Sender: FDA-Public Use
  Company Number: US-JNJFOC-20220411562

PATIENT
  Sex: Female

DRUGS (2)
  1. WOMENS ROGAINE UNSCENTED [Suspect]
     Active Substance: MINOXIDIL
     Indication: Alopecia
     Dosage: DOSE: USED IT OFF AND ON FOR ABOUT A MONTH
     Route: 061
     Dates: start: 202112
  2. FOLIC ACID\METHYLCOBALAMIN [Suspect]
     Active Substance: FOLIC ACID\METHYLCOBALAMIN
     Indication: Alopecia
     Route: 065

REACTIONS (4)
  - Acne cystic [Recovering/Resolving]
  - Product use in unapproved indication [Unknown]
  - Off label use [Unknown]
  - Contraindicated product administered [Unknown]

NARRATIVE: CASE EVENT DATE: 20211201
